FAERS Safety Report 5869869-8 (Version None)
Quarter: 2008Q3

REPORT INFORMATION
  Report Type: 
  Country: None (occurrence: None)
  Receive Date: 20080902
  Receipt Date: 20080822
  Transmission Date: 20090109
  Serious: Yes (Hospitalization, Other)
  Sender: FDA-Public Use
  Company Number: SPV1-2008-01812

PATIENT
  Age: 49 Year
  Sex: Male
  Weight: 99.8 kg

DRUGS (3)
  1. VYVANSE [Suspect]
     Indication: NARCOLEPSY
     Dosage: MG, 1X/DAY:QD, ORAL, INCREASED DOSE, ORAL
     Route: 048
     Dates: start: 20080619, end: 20080701
  2. VYVANSE [Suspect]
     Indication: NARCOLEPSY
     Dosage: MG, 1X/DAY:QD, ORAL, INCREASED DOSE, ORAL
     Route: 048
     Dates: start: 20080701, end: 20080719
  3. LEXAPRO [Concomitant]

REACTIONS (10)
  - AGGRESSION [None]
  - DECREASED APPETITE [None]
  - INCORRECT DOSE ADMINISTERED [None]
  - MOOD ALTERED [None]
  - OFF LABEL USE [None]
  - PARANOIA [None]
  - PNEUMONIA ASPIRATION [None]
  - SOCIAL AVOIDANT BEHAVIOUR [None]
  - SUICIDE ATTEMPT [None]
  - VOMITING [None]
